FAERS Safety Report 8132036-1 (Version None)
Quarter: 2012Q1

REPORT INFORMATION
  Report Type: 
  Country: None (occurrence: None)
  Receive Date: 20120103
  Receipt Date: 20110921
  Transmission Date: 20120608
  Serious: No
  Sender: FDA-Public Use
  Company Number: AE-2011-001710

PATIENT
  Age: 44 Year
  Sex: Male
  Weight: 92.9874 kg

DRUGS (6)
  1. PEGASYS [Concomitant]
  2. TIANTRIM (ANTIHYPERTENSIVES) [Concomitant]
  3. RIBAVIRIN [Concomitant]
  4. INCIVEK [Suspect]
     Dosage: 2250 MG (750 MG,1 IN 8 HR),ORAL
     Route: 048
     Dates: start: 20110913
  5. VERAPAMIL [Concomitant]
  6. LISINOPRIL [Concomitant]

REACTIONS (5)
  - SKIN IRRITATION [None]
  - NAUSEA [None]
  - FATIGUE [None]
  - JOB DISSATISFACTION [None]
  - IRRITABILITY [None]
